FAERS Safety Report 17865709 (Version 2)
Quarter: 2020Q2

REPORT INFORMATION
  Report Type: Spontaneous
  Country: US (occurrence: US)
  Receive Date: 20200605
  Receipt Date: 20200612
  Transmission Date: 20200714
  Serious: Yes (Disabling, Other)
  Sender: FDA-Public Use
  Company Number: US-SA-2020SA138979

PATIENT

DRUGS (1)
  1. ZANTAC 75 [Suspect]
     Active Substance: RANITIDINE HYDROCHLORIDE
     Dosage: 500 MG, QOW
     Route: 048
     Dates: start: 1998, end: 2010

REACTIONS (5)
  - Loss of personal independence in daily activities [Unknown]
  - Anxiety [Unknown]
  - Prostate cancer [Unknown]
  - Exposure to toxic agent [Unknown]
  - Injury [Unknown]

NARRATIVE: CASE EVENT DATE: 1998
